FAERS Safety Report 7280957-4 (Version None)
Quarter: 2011Q1

REPORT INFORMATION
  Report Type: 
  Country: None (occurrence: None)
  Receive Date: 20110208
  Receipt Date: 20110131
  Transmission Date: 20110831
  Serious: Yes (Death)
  Sender: FDA-Public Use
  Company Number: CHPA2011US01894

PATIENT
  Age: 46 Year
  Sex: Male

DRUGS (5)
  1. DRUG THERAPY NOS [Suspect]
  2. ACETAMINOPHEN (PARACETAMOL),DIPHENHYDRAMINE HYDROCHLORIDE [Suspect]
  3. METFORMIN [Suspect]
  4. COCAINE [Suspect]
  5. ETHANOL [Suspect]

REACTIONS (1)
  - COMPLETED SUICIDE [None]
